FAERS Safety Report 24816613 (Version 3)
Quarter: 2025Q1

REPORT INFORMATION
  Report Type: Report from Study
  Country: CA (occurrence: CA)
  Receive Date: 20250107
  Receipt Date: 20250219
  Transmission Date: 20250409
  Serious: Yes (Other)
  Sender: HLS THERAPEUTICS
  Company Number: CA-HLS-202403251

PATIENT
  Age: 21 Year
  Sex: Male

DRUGS (1)
  1. CLOZARIL [Suspect]
     Active Substance: CLOZAPINE
     Indication: Product used for unknown indication
     Route: 048
     Dates: start: 20240111, end: 20250206

REACTIONS (4)
  - Drug ineffective [Unknown]
  - Sedation [Unknown]
  - Product dose omission issue [Unknown]
  - Overdose [Unknown]

NARRATIVE: CASE EVENT DATE: 20241201
